FAERS Safety Report 6483751-7 (Version None)
Quarter: 2009Q4

REPORT INFORMATION
  Report Type: 
  Country: None (occurrence: None)
  Receive Date: 20091207
  Receipt Date: 20091207
  Transmission Date: 20100525
  Serious: No
  Sender: FDA-Public Use
  Company Number: None

PATIENT
  Age: 32 Year
  Sex: Female
  Weight: 90.7194 kg

DRUGS (1)
  1. COLD REMEDY GEL SWABS [Suspect]
     Dosage: QID
     Dates: start: 20090612, end: 20090616

REACTIONS (1)
  - ANOSMIA [None]
